FAERS Safety Report 16735657 (Version 1)
Quarter: 2019Q3

REPORT INFORMATION
  Report Type: Spontaneous
  Country: US (occurrence: US)
  Receive Date: 20190708
  Receipt Date: 20190708
  Transmission Date: 20191005
  Serious: No
  Sender: FDA-Public Use
  Company Number: None

PATIENT
  Age: 66 Year
  Sex: Female

DRUGS (9)
  1. OCALIVA [Suspect]
     Active Substance: OBETICHOLIC ACID
     Indication: PRIMARY BILIARY CHOLANGITIS
     Dates: start: 20180306
  2. SIMVASTATIN. [Concomitant]
     Active Substance: SIMVASTATIN
  3. URSODIOL. [Concomitant]
     Active Substance: URSODIOL
  4. METFORMIN [Concomitant]
     Active Substance: METFORMIN HYDROCHLORIDE
  5. GLIPIZIDE. [Concomitant]
     Active Substance: GLIPIZIDE
  6. LEVOTHYROXINE. [Concomitant]
     Active Substance: LEVOTHYROXINE
  7. LISINOPRIL. [Concomitant]
     Active Substance: LISINOPRIL
  8. CENTRUM [Concomitant]
     Active Substance: VITAMINS
  9. MELATONIN [Concomitant]
     Active Substance: MELATONIN

REACTIONS (1)
  - Pruritus generalised [None]

NARRATIVE: CASE EVENT DATE: 201905
